FAERS Safety Report 23701900 (Version 1)
Quarter: 2024Q2

REPORT INFORMATION
  Report Type: Spontaneous
  Country: US (occurrence: None)
  Receive Date: 20240402
  Receipt Date: 20240402
  Transmission Date: 20240716
  Serious: No
  Sender: FDA-Public Use
  Company Number: None

PATIENT
  Age: 54 Year
  Sex: Male
  Weight: 86.5 kg

DRUGS (2)
  1. MIRCERA [Suspect]
     Active Substance: METHOXY POLYETHYLENE GLYCOL-EPOETIN BETA
     Indication: Anaemia
     Dosage: FREQUENCY : EVERY OTHER WEEK;?OTHER ROUTE : HEMODIALYSIS;?
     Route: 050
     Dates: start: 20240209, end: 20240302
  2. MIRCERA [Suspect]
     Active Substance: METHOXY POLYETHYLENE GLYCOL-EPOETIN BETA
     Indication: End stage renal disease

REACTIONS (3)
  - Dialysis [None]
  - Cardio-respiratory arrest [None]
  - Injection related reaction [None]

NARRATIVE: CASE EVENT DATE: 20240325
